FAERS Safety Report 17552916 (Version 2)
Quarter: 2020Q1

REPORT INFORMATION
  Report Type: Spontaneous
  Country: GB (occurrence: GB)
  Receive Date: 20200318
  Receipt Date: 20200324
  Transmission Date: 20200409
  Serious: Yes (Life-Threatening, Hospitalization, Disabling)
  Sender: FDA-Public Use
  Company Number: GB-SUN PHARMACEUTICAL INDUSTRIES LTD-2020RR-240586

PATIENT
  Age: 50 Year
  Sex: Female

DRUGS (3)
  1. VENLAFAXINE [Suspect]
     Active Substance: VENLAFAXINE HYDROCHLORIDE
     Indication: DEPRESSION
     Dosage: DISCONTINUED THEN REINTRODUCED AT REDUCED DOSE ON PSYCHIATRY ADVICE
     Route: 048
  2. BALSALAZIDE [Suspect]
     Active Substance: BALSALAZIDE
     Indication: COLITIS ULCERATIVE
     Dosage: 3 CAPSULES ONCE DAILY
     Route: 048
  3. TRIMETHOPRIM. [Concomitant]
     Active Substance: TRIMETHOPRIM
     Indication: PRODUCT USED FOR UNKNOWN INDICATION
     Dosage: 3 DAY COURSE
     Route: 065
     Dates: start: 20191204

REACTIONS (7)
  - Cardiac failure [Not Recovered/Not Resolved]
  - Effusion [Unknown]
  - Nausea [Unknown]
  - Chest discomfort [Unknown]
  - Dyspnoea [Unknown]
  - Congestive cardiomyopathy [Not Recovered/Not Resolved]
  - Left ventricular dysfunction [Not Recovered/Not Resolved]

NARRATIVE: CASE EVENT DATE: 20200108
